FAERS Safety Report 5053191-6 (Version None)
Quarter: 2006Q3

REPORT INFORMATION
  Report Type: 
  Country: None (occurrence: None)
  Receive Date: 20060712
  Receipt Date: 20060621
  Transmission Date: 20061208
  Serious: No
  Sender: FDA-Public Use
  Company Number: US200606005053

PATIENT
  Age: 36 Year
  Sex: Female

DRUGS (2)
  1. CYMBALTA [Suspect]
     Indication: DEPRESSION
     Dosage: 30 MG; 30 MG
  2. CYMBALTA [Suspect]
     Indication: DEPRESSION
     Dosage: 30 MG; 30 MG

REACTIONS (1)
  - TRANSAMINASES INCREASED [None]
